FAERS Safety Report 8833970 (Version 1)
Quarter: 2012Q4

REPORT INFORMATION
  Report Type: 
  Country: US (occurrence: US)
  Receive Date: 20121010
  Receipt Date: 20121010
  Transmission Date: 20130627
  Serious: No
  Sender: FDA-Public Use
  Company Number: US-009507513-1210USA003404

PATIENT
  Age: 55 Year
  Sex: Male

DRUGS (3)
  1. SAPHRIS [Suspect]
     Indication: BIPOLAR DISORDER
     Dosage: 10 mg, UNK
     Route: 060
     Dates: start: 2011
  2. SAPHRIS [Suspect]
     Dosage: 5 UNK, UNK
     Route: 060
     Dates: end: 20120930
  3. LITHIUM [Concomitant]
     Dosage: UNK

REACTIONS (2)
  - Formication [Not Recovered/Not Resolved]
  - Abdominal discomfort [Not Recovered/Not Resolved]
